FAERS Safety Report 6859995-9 (Version None)
Quarter: 2010Q3

REPORT INFORMATION
  Report Type: 
  Country: None (occurrence: None)
  Receive Date: 20100720
  Receipt Date: 20100712
  Transmission Date: 20110219
  Serious: Yes (Hospitalization)
  Sender: FDA-Public Use
  Company Number: US-ASTRAZENECA-2010SE17162

PATIENT
  Age: 28771 Day
  Sex: Female
  Weight: 66.7 kg

DRUGS (3)
  1. ARIMIDEX [Suspect]
     Indication: BREAST CANCER
     Route: 048
     Dates: start: 20070701
  2. METOPROLOL SUCCINATE [Concomitant]
     Indication: HYPERTENSION
  3. TRIAMTEREN-HCTZ [Concomitant]
     Indication: HYPERTENSION
     Dosage: 37.5/25 MG DAILY

REACTIONS (3)
  - ANORECTAL OPERATION [None]
  - DYSPAREUNIA [None]
  - VULVOVAGINAL DRYNESS [None]
